FAERS Safety Report 7825262-X (Version None)
Quarter: 2011Q4

REPORT INFORMATION
  Report Type: 
  Country: None (occurrence: None)
  Receive Date: 20111019
  Receipt Date: 20110916
  Transmission Date: 20120403
  Serious: Yes (Hospitalization, Other)
  Sender: FDA-Public Use
  Company Number: US-GLAXOSMITHKLINE-A0945542A

PATIENT
  Age: 3 Year
  Sex: Female
  Weight: 13.2 kg

DRUGS (5)
  1. FLOLAN [Suspect]
     Indication: PULMONARY HYPERTENSION
     Dosage: 166NGKM UNKNOWN
     Route: 065
     Dates: start: 20091105, end: 20110101
  2. REVATIO [Concomitant]
  3. FOLIC ACID [Concomitant]
  4. TRACLEER [Concomitant]
  5. MELATONIN [Concomitant]

REACTIONS (1)
  - PLATELET COUNT DECREASED [None]
